FAERS Safety Report 4341949-8 (Version None)
Quarter: 2004Q2

REPORT INFORMATION
  Report Type: 
  Country: None (occurrence: None)
  Receive Date: 20040420
  Receipt Date: 20040413
  Transmission Date: 20050107
  Serious: Yes (Death, Hospitalization)
  Sender: FDA-Public Use
  Company Number: PHNR2004AU00880

PATIENT
  Sex: Female

DRUGS (2)
  1. SLOW-K [Suspect]
     Dosage: 2400 MG, QD
     Route: 048
     Dates: start: 20021014, end: 20021113
  2. ENALAPRIL MALEATE [Suspect]
     Dosage: 12.5 MG, QD
     Route: 048
     Dates: start: 20021014, end: 20021113

REACTIONS (3)
  - DEHYDRATION [None]
  - HYPERKALAEMIA [None]
  - RENAL FAILURE ACUTE [None]
